FAERS Safety Report 14023299 (Version 4)
Quarter: 2024Q2

REPORT INFORMATION
  Report Type: Spontaneous
  Country: FI (occurrence: FI)
  Receive Date: 20170929
  Receipt Date: 20240402
  Transmission Date: 20240716
  Serious: Yes (Other)
  Sender: FDA-Public Use
  Company Number: FI-MYLANLABS-2017M1059321

PATIENT
  Age: 37 Year
  Sex: Female

DRUGS (8)
  1. CLOZAPINE [Suspect]
     Active Substance: CLOZAPINE
     Indication: Product used for unknown indication
     Dosage: 100 MILLIGRAM, QD
     Route: 065
     Dates: end: 2017
  2. CLOZAPINE [Suspect]
     Active Substance: CLOZAPINE
     Dosage: 50 MILLIGRAM, PM
     Route: 065
     Dates: start: 2017
  3. CLOZAPINE [Suspect]
     Active Substance: CLOZAPINE
     Dosage: 200 MILLIGRAM, PM
     Route: 065
     Dates: start: 2017
  4. VALPROATE [Suspect]
     Active Substance: VALPROIC ACID
     Indication: Epilepsy
     Dosage: UNK
     Route: 065
  5. MINIRIN [Suspect]
     Active Substance: DESMOPRESSIN ACETATE
     Indication: Diabetes insipidus
     Dosage: UNK
     Route: 065
     Dates: start: 198301
  6. MINIRIN [Suspect]
     Active Substance: DESMOPRESSIN ACETATE
     Dosage: 2.5 MICROGRAM, BID
     Route: 065
  7. LAMICTAL [Suspect]
     Active Substance: LAMOTRIGINE
     Indication: Dyskinesia
     Dosage: 125 MILLIGRAM, BID
     Route: 065
  8. LORAZEPAM [Suspect]
     Active Substance: LORAZEPAM
     Indication: Anxiety disorder
     Dosage: 1 MILLIGRAM, AM
     Route: 065

REACTIONS (12)
  - Thirst decreased [Unknown]
  - Micturition urgency [Unknown]
  - Disturbance in attention [Unknown]
  - Anxiety disorder [Unknown]
  - Dyskinesia [Unknown]
  - Decreased appetite [Unknown]
  - Sluggishness [Unknown]
  - Memory impairment [Unknown]
  - Epilepsy [Unknown]
  - Somnolence [Unknown]
  - Fatigue [Unknown]
  - Adverse event [Unknown]
